FAERS Safety Report 6035351-0 (Version None)
Quarter: 2009Q1

REPORT INFORMATION
  Report Type: 
  Country: None (occurrence: None)
  Receive Date: 20090109
  Receipt Date: 20090109
  Transmission Date: 20090719
  Serious: Yes (Hospitalization)
  Sender: FDA-Public Use
  Company Number: None

PATIENT
  Sex: Female
  Weight: 75.5 kg

DRUGS (4)
  1. ABRAXANE [Suspect]
     Indication: ADENOCARCINOMA PANCREAS
     Dosage: 174 MG D1,D8,D15/CYCLE 042
     Dates: start: 20081218, end: 20081224
  2. VANDETANIB [Suspect]
     Indication: ADENOCARCINOMA PANCREAS
     Dosage: 200 MG QD X 28 DAYS 047
     Dates: start: 20081218, end: 20081231
  3. LOVENOX [Concomitant]
  4. ASCORBIC ACID [Concomitant]

REACTIONS (2)
  - MUCOSAL INFLAMMATION [None]
  - NEUTROPENIA [None]
